FAERS Safety Report 18068313 (Version 2)
Quarter: 2020Q3

REPORT INFORMATION
  Report Type: Report from Study
  Country: US (occurrence: US)
  Receive Date: 20200725
  Receipt Date: 20200918
  Transmission Date: 20201103
  Serious: No
  Sender: FDA-Public Use
  Company Number: NVSC2020US208863

PATIENT
  Age: 54 Year
  Sex: Female

DRUGS (1)
  1. COSENTYX [Suspect]
     Active Substance: SECUKINUMAB
     Indication: PSORIATIC ARTHROPATHY
     Dosage: 1 DF, QMO (CURRENTY RECEIVING 1 INJECTION Q4 WEEKS)
     Route: 065

REACTIONS (2)
  - Weight increased [Unknown]
  - Arthralgia [Not Recovered/Not Resolved]
